FAERS Safety Report 4338667-9 (Version None)
Quarter: 2004Q2

REPORT INFORMATION
  Report Type: 
  Country: None (occurrence: None)
  Receive Date: 20040409
  Receipt Date: 20040402
  Transmission Date: 20050107
  Serious: Yes (Hospitalization)
  Sender: FDA-Public Use
  Company Number: 04P-083-0255805-00

PATIENT
  Age: 49 Year
  Sex: Female

DRUGS (1)
  1. BIAXIN [Suspect]
     Indication: PHARYNGITIS
     Dosage: 500 MG, 1 IN 1 D, PER ORAL
     Route: 048
     Dates: start: 20040313, end: 20040315

REACTIONS (1)
  - ATRIAL FIBRILLATION [None]
